FAERS Safety Report 8388747 (Version 2)
Quarter: 2012Q4

REPORT INFORMATION
  Report Type: 
  Country: US (occurrence: US)
  Receive Date: 20120203
  Receipt Date: 20121227
  Transmission Date: 20130627
  Serious: Yes (Life-Threatening, Congenital Anomaly, Other)
  Sender: FDA-Public Use
  Company Number: US-PFIZER INC-2012026213

PATIENT
  Sex: Male

DRUGS (10)
  1. ZOLOFT [Suspect]
     Dosage: 50 mg, UNK
     Route: 064
     Dates: start: 200611, end: 2011
  2. PRENATAL VITAMINS [Concomitant]
     Dosage: UNK
     Route: 064
  3. CALCIUM [Concomitant]
     Dosage: UNK
     Route: 064
  4. HYDROCODONE/APAP [Concomitant]
     Dosage: UNK
     Route: 064
  5. ALPRAZOLAM [Concomitant]
     Dosage: 1 mg, UNK
     Route: 064
  6. METOCLOPRAMIDE [Concomitant]
     Dosage: 5mg/5ml syrup, UNK
     Route: 064
  7. FUROSEMIDE [Concomitant]
     Dosage: UNK
     Route: 064
  8. RANITIDINE [Concomitant]
     Dosage: 15mg/ml syrup, UNK
     Route: 064
  9. CEPHALEXIN [Concomitant]
     Dosage: UNK
     Route: 064
  10. SERTRALINE [Concomitant]
     Dosage: 50 mg, UNK
     Route: 064
     Dates: start: 20090917

REACTIONS (6)
  - Maternal exposure timing unspecified [Unknown]
  - Fallot^s tetralogy [Unknown]
  - Pulmonary artery atresia [Unknown]
  - Congenital pulmonary hypertension [Unknown]
  - Pulmonary artery stenosis congenital [Unknown]
  - Congenital pulmonary artery anomaly [Unknown]
